FAERS Safety Report 5497678-0 (Version None)
Quarter: 2007Q4

REPORT INFORMATION
  Report Type: 
  Country: None (occurrence: None)
  Receive Date: 20071023
  Receipt Date: 20071009
  Transmission Date: 20080405
  Serious: Yes (Hospitalization, Other)
  Sender: FDA-Public Use
  Company Number: 2007P1000675

PATIENT
  Age: 55 Year
  Sex: Female

DRUGS (3)
  1. BUSULFAN (BUSULFAN) [Suspect]
     Indication: STEM CELL TRANSPLANT
     Dosage: 10.6 ML;X1;IV
     Route: 042
     Dates: start: 20061011, end: 20061015
  2. FLUDARABINE PHOSPHATE [Suspect]
     Indication: DRUG USE FOR UNKNOWN INDICATION
     Dosage: 39 MG;X1;IV
     Route: 042
     Dates: start: 20061011, end: 20061016
  3. CYCLOSPORINE [Concomitant]

REACTIONS (17)
  - ACUTE GRAFT VERSUS HOST DISEASE [None]
  - ANOREXIA [None]
  - ARTHRITIS BACTERIAL [None]
  - CARDIAC FAILURE [None]
  - CORD BLOOD TRANSPLANT THERAPY [None]
  - CYTOMEGALOVIRUS VIRAEMIA [None]
  - DIARRHOEA [None]
  - FEBRILE NEUTROPENIA [None]
  - HYPONATRAEMIA [None]
  - LIP PAIN [None]
  - LIP SWELLING [None]
  - MALAISE [None]
  - PATHOGEN RESISTANCE [None]
  - PHARYNGOLARYNGEAL PAIN [None]
  - PLEURAL EFFUSION [None]
  - STAPHYLOCOCCAL SEPSIS [None]
  - STOMATITIS [None]
